FAERS Safety Report 18223292 (Version 2)
Quarter: 2021Q4

REPORT INFORMATION
  Report Type: Spontaneous
  Country: BR (occurrence: BR)
  Receive Date: 20200902
  Receipt Date: 20211206
  Transmission Date: 20220303
  Serious: Yes (Other)
  Sender: FDA-Public Use
  Company Number: BR-BIOMARINAP-BR-2020-132012

PATIENT
  Age: 5 Year
  Sex: Male
  Weight: 14 kg

DRUGS (5)
  1. NAGLAZYME [Suspect]
     Active Substance: GALSULFASE
     Indication: Mucopolysaccharidosis VI
     Dosage: UNK
     Route: 042
     Dates: start: 20100110
  2. RANITIDINE [Concomitant]
     Active Substance: RANITIDINE
     Indication: Product used for unknown indication
     Dosage: UNK
     Route: 042
     Dates: start: 20140530
  3. CETIRIZINE [Concomitant]
     Active Substance: CETIRIZINE HYDROCHLORIDE
     Indication: Product used for unknown indication
  4. MONTELUKAST [Concomitant]
     Active Substance: MONTELUKAST SODIUM
     Indication: Product used for unknown indication
  5. MEPERIDINE HYDROCHLORIDE [Concomitant]
     Active Substance: MEPERIDINE HYDROCHLORIDE
     Indication: Product used for unknown indication

REACTIONS (11)
  - Type I hypersensitivity [Unknown]
  - Angioedema [Unknown]
  - Flushing [Unknown]
  - Feeling hot [Unknown]
  - Erythema [Unknown]
  - Pruritus [Unknown]
  - Rash maculo-papular [Unknown]
  - Vomiting [Unknown]
  - Pyrexia [Unknown]
  - Urticaria [Unknown]
  - Tachycardia [Unknown]

NARRATIVE: CASE EVENT DATE: 20140427
